FAERS Safety Report 6522036-7 (Version None)
Quarter: 2009Q4

REPORT INFORMATION
  Report Type: 
  Country: None (occurrence: None)
  Receive Date: 20091224
  Receipt Date: 20091221
  Transmission Date: 20100525
  Serious: Yes (Death)
  Sender: FDA-Public Use
  Company Number: 2009AC000526

PATIENT
  Age: 61 Year
  Sex: Female

DRUGS (30)
  1. DIGOXIN [Suspect]
     Dosage: 125 MCG; QD; PO
     Route: 048
  2. PROZAC [Concomitant]
  3. K-DUR [Concomitant]
  4. LASIX [Concomitant]
  5. NORVASC [Concomitant]
  6. CARDURA [Concomitant]
  7. ANTARA (MICRONIZED) [Concomitant]
  8. COREG [Concomitant]
  9. ZYVOX [Concomitant]
  10. BENICAR [Concomitant]
  11. BACTROBAN [Concomitant]
  12. PLAVIX [Concomitant]
  13. MONOPRIL [Concomitant]
  14. NASONEX [Concomitant]
  15. PRAVACHOL [Concomitant]
  16. KLOR-CON [Concomitant]
  17. PREDNISONE [Concomitant]
  18. AMBIEN [Concomitant]
  19. FLUOXETINE [Concomitant]
  20. PRAVASTATIN [Concomitant]
  21. AVELOX [Concomitant]
  22. DOXAZOSIN [Concomitant]
  23. ZETIA [Concomitant]
  24. AMLODIPINE [Concomitant]
  25. TRIMOX [Concomitant]
  26. ENALAPRIL [Concomitant]
  27. FOLIC ACID [Concomitant]
  28. ZOLOFT [Concomitant]
  29. CALCIUM [Concomitant]
  30. HUMALOG [Concomitant]

REACTIONS (21)
  - ASTHMA [None]
  - BRADYCARDIA [None]
  - CARDIAC DISORDER [None]
  - CARDIAC FAILURE CONGESTIVE [None]
  - CARDIOMYOPATHY [None]
  - CARDIOVASCULAR DISORDER [None]
  - CORONARY ARTERY DISEASE [None]
  - CORONARY ARTERY OCCLUSION [None]
  - DIABETES MELLITUS [None]
  - DIZZINESS [None]
  - HYPERCHOLESTEROLAEMIA [None]
  - HYPERLIPIDAEMIA [None]
  - HYPERTENSION [None]
  - HYPERTENSIVE HEART DISEASE [None]
  - HYPOTENSION [None]
  - NAUSEA [None]
  - NEPHROPATHY TOXIC [None]
  - RENAL FAILURE CHRONIC [None]
  - SUBCUTANEOUS ABSCESS [None]
  - VOMITING [None]
  - WOUND INFECTION STAPHYLOCOCCAL [None]
